FAERS Safety Report 6132199-3 (Version None)
Quarter: 2009Q1

REPORT INFORMATION
  Report Type: 
  Country: None (occurrence: None)
  Receive Date: 20090325
  Receipt Date: 20090316
  Transmission Date: 20090719
  Serious: Yes (Death, Hospitalization)
  Sender: FDA-Public Use
  Company Number: CA-BAXTER-2009BH004171

PATIENT
  Age: 70 Year
  Sex: Female

DRUGS (1)
  1. HIGHLY CONCENTRATED POTASSIUM CHLORIDE INJECTION IN PLASTIC CONTAINER [Suspect]
     Indication: DRUG USE FOR UNKNOWN INDICATION
     Route: 042
     Dates: start: 20090313

REACTIONS (1)
  - CARDIAC ARREST [None]
